FAERS Safety Report 17688614 (Version 2)
Quarter: 2020Q2

REPORT INFORMATION
  Report Type: Report from Study
  Country: None (occurrence: US)
  Receive Date: 20200421
  Receipt Date: 20200628
  Transmission Date: 20200714
  Serious: Yes (Hospitalization, Other)
  Sender: FDA-Public Use
  Company Number: US-ABBVIE-20K-163-3370301-00

PATIENT
  Sex: Female

DRUGS (2)
  1. VENCLEXTA [Suspect]
     Active Substance: VENETOCLAX
     Indication: PLASMA CELL MYELOMA
     Route: 048
     Dates: start: 202002
  2. VENCLEXTA [Suspect]
     Active Substance: VENETOCLAX
     Route: 048
     Dates: start: 202002

REACTIONS (6)
  - Seizure [Unknown]
  - Decreased activity [Unknown]
  - Road traffic accident [Unknown]
  - Post-traumatic pain [Unknown]
  - Brain neoplasm [Unknown]
  - Neoplasm [Unknown]

NARRATIVE: CASE EVENT DATE: 2020
